FAERS Safety Report 8710329 (Version 2)
Quarter: 2013Q4

REPORT INFORMATION
  Report Type: Spontaneous
  Country: US (occurrence: US)
  Receive Date: 20120807
  Receipt Date: 20131101
  Transmission Date: 20140711
  Serious: No
  Sender: FDA-Public Use
  Company Number: US-009507513-1207USA003113

PATIENT
  Age: 64 Year
  Sex: Female
  Weight: 124.26 kg

DRUGS (5)
  1. VICTRELIS [Suspect]
     Dosage: 800 MG, TID
     Route: 048
  2. PEGASYS [Concomitant]
     Dosage: 180 MICROGRAM, QM
  3. REBETOL [Concomitant]
     Dosage: 200 MG, UNK
  4. TRAMADOL HYDROCHLORIDE [Concomitant]
     Dosage: 200 MG, UNK
  5. LEVOTHYROXINE SODIUM [Concomitant]
     Dosage: 100 MICROGRAM, UNK

REACTIONS (6)
  - Pain [Unknown]
  - Muscle spasms [Unknown]
  - Rash [Unknown]
  - Rectal lesion [Unknown]
  - Diarrhoea [Unknown]
  - Rash [Unknown]
